FAERS Safety Report 23941667 (Version 1)
Quarter: 2024Q2

REPORT INFORMATION
  Report Type: Spontaneous
  Country: US (occurrence: US)
  Receive Date: 20240605
  Receipt Date: 20240605
  Transmission Date: 20240716
  Serious: Yes (Death, Other)
  Sender: FDA-Public Use
  Company Number: US-AMGEN-USASP2024108765

PATIENT
  Age: 9 Year
  Sex: Male

DRUGS (9)
  1. RITUXIMAB [Suspect]
     Active Substance: RITUXIMAB
     Indication: B-cell type acute leukaemia
     Dosage: 375 MILLIGRAM/SQ. METER, DAYS 2 AND 8
     Route: 042
  2. BLINATUMOMAB [Suspect]
     Active Substance: BLINATUMOMAB
     Indication: B-cell type acute leukaemia
     Dosage: CYCLE 1-5 MICROGRAM/SQ. METER, QD, MAX 9 MCG/DAY) CIV DAYS 14-17
     Route: 042
  3. BLINATUMOMAB [Suspect]
     Active Substance: BLINATUMOMAB
     Dosage: CYCLE 1- 15 MICROGRAM/SQ. METER, QD, (MAX 28 MCG/DAY) CIV DAYS, 18-29
     Route: 042
  4. BLINATUMOMAB [Suspect]
     Active Substance: BLINATUMOMAB
     Dosage: CYCLE 2 AND AFTER- 15 MICROGRAM/SQ. METER, QD, (MAX 28 MCG/DAY) CIV DAYS 4-28
     Route: 042
  5. PEGFILGRASTIM [Suspect]
     Active Substance: PEGFILGRASTIM
     Indication: Prophylaxis
     Dosage: 0.1 MILLIGRAM/KILOGRAM, (MAX 6 MG), DAY 4
     Route: 058
  6. INOTUZUMAB OZOGAMICIN [Concomitant]
     Active Substance: INOTUZUMAB OZOGAMICIN
     Indication: B-cell type acute leukaemia
     Dosage: 1.2 MILLIGRAM/SQ. METER
     Route: 042
  7. CYCLOPHOSPHAMIDE [Concomitant]
     Active Substance: CYCLOPHOSPHAMIDE
     Dosage: 150 MILLIGRAM/SQ. METER, Q12H, DAYS 1-3 (6 TOTAL DOSES)
     Route: 042
  8. DEXAMETHASONE [Concomitant]
     Active Substance: DEXAMETHASONE
     Dosage: 10 MILLIGRAM/SQ. METER, Q12H, (MAX 20 MG/DAY) DAYS 1-4 AND 11-14
     Route: 042
  9. VINCRISTINE [Concomitant]
     Active Substance: VINCRISTINE
     Dosage: 1.5 MILLIGRAM/SQ. METER, (MAX 2 MG/DOSE) IV DAYS 1 AND 8
     Route: 042

REACTIONS (3)
  - Death [Fatal]
  - B-cell type acute leukaemia [Unknown]
  - Off label use [Unknown]
